FAERS Safety Report 17229342 (Version 1)
Quarter: 2020Q1

REPORT INFORMATION
  Report Type: Spontaneous
  Country: US (occurrence: US)
  Receive Date: 20200102
  Receipt Date: 20200102
  Transmission Date: 20200409
  Serious: Yes (Hospitalization, Other)
  Sender: FDA-Public Use
  Company Number: None

PATIENT
  Age: 71 Year
  Sex: Male

DRUGS (1)
  1. TESTOSTERONE CYP [Suspect]
     Active Substance: TESTOSTERONE CYPIONATE
     Indication: TESTICULAR FAILURE
     Dosage: ?          OTHER FREQUENCY:EVERY WEEK;?
     Route: 030
     Dates: start: 20190418

REACTIONS (2)
  - Cardiac operation [None]
  - Vascular graft [None]

NARRATIVE: CASE EVENT DATE: 20191206
